FAERS Safety Report 9643299 (Version 2)
Quarter: 2014Q2

REPORT INFORMATION
  Report Type: Spontaneous
  Country: AT (occurrence: AT)
  Receive Date: 20131024
  Receipt Date: 20140507
  Transmission Date: 20141212
  Serious: Yes (Hospitalization, Other)
  Sender: FDA-Public Use
  Company Number: AT-ELI_LILLY_AND_COMPANY-AT201310004450

PATIENT
  Age: 25 Year
  Sex: Male
  Weight: 93 kg

DRUGS (18)
  1. CYMBALTA [Suspect]
     Indication: PRODUCT USED FOR UNKNOWN INDICATION
     Dosage: 120 MG, UNKNOWN
     Route: 065
     Dates: start: 20130320, end: 20130613
  2. CYMBALTA [Interacting]
     Dosage: 150 MG, UNKNOWN
     Route: 065
     Dates: start: 20130614, end: 20130630
  3. CYMBALTA [Interacting]
     Dosage: 120 MG, UNKNOWN
     Route: 065
     Dates: start: 20130701, end: 20130711
  4. CYMBALTA [Interacting]
     Dosage: 60 MG, UNKNOWN
     Route: 065
     Dates: start: 20130712, end: 20130712
  5. ABILIFY [Interacting]
     Indication: PRODUCT USED FOR UNKNOWN INDICATION
     Dosage: 10 MG, UNKNOWN
     Route: 065
     Dates: start: 201304, end: 20130628
  6. ABILIFY [Interacting]
     Dosage: 15 MG, UNKNOWN
     Route: 065
     Dates: start: 20130629, end: 20130630
  7. ABILIFY [Interacting]
     Dosage: 20 MG, UNKNOWN
     Route: 065
     Dates: start: 20130701, end: 20130701
  8. ABILIFY [Interacting]
     Dosage: 15 MG, UNKNOWN
     Route: 065
     Dates: start: 20130702
  9. XANOR [Interacting]
     Indication: PRODUCT USED FOR UNKNOWN INDICATION
     Dosage: 2 MG, UNKNOWN
     Route: 065
     Dates: start: 20130621, end: 20130621
  10. XANOR [Interacting]
     Dosage: 2.5 UNK, UNK
     Route: 065
     Dates: start: 20130622, end: 20130623
  11. XANOR [Interacting]
     Dosage: 3 MG, UNK
     Route: 065
     Dates: start: 20130624, end: 20130628
  12. XANOR [Interacting]
     Dosage: 2.5 MG, UNKNOWN
     Route: 065
     Dates: start: 20130629, end: 20130703
  13. XANOR [Interacting]
     Dosage: 0.5 MG, UNK
     Dates: start: 20130704, end: 20130704
  14. ZYPREXA [Concomitant]
     Indication: PRODUCT USED FOR UNKNOWN INDICATION
     Dosage: 15 MG, UNKNOWN
     Route: 065
     Dates: start: 201303, end: 20130619
  15. ZYPREXA [Concomitant]
     Dosage: 10 MG, UNK
     Route: 065
     Dates: start: 20130620, end: 20130623
  16. ZYPREXA [Concomitant]
     Dosage: 5 MG, UNKNOWN
     Route: 065
     Dates: start: 20130624, end: 20130625
  17. TEMESTA [Concomitant]
     Indication: PRODUCT USED FOR UNKNOWN INDICATION
     Dosage: 5 MG, UNK
     Route: 065
     Dates: start: 20130705, end: 20130715
  18. TEMESTA [Concomitant]
     Dosage: 3.75 MG, UNK
     Dates: start: 20130716, end: 20130727

REACTIONS (3)
  - Schizophrenia [Unknown]
  - Urinary retention [Recovered/Resolved]
  - Drug interaction [Unknown]
